FAERS Safety Report 8354958-9 (Version None)
Quarter: 2012Q2

REPORT INFORMATION
  Report Type: 
  Country: None (occurrence: None)
  Receive Date: 20120511
  Receipt Date: 20120503
  Transmission Date: 20120825
  Serious: Yes (Hospitalization, Other)
  Sender: FDA-Public Use
  Company Number: US-ROXANE LABORATORIES, INC.-2012-RO-01179RO

PATIENT
  Age: 69 Year
  Sex: Male

DRUGS (5)
  1. NAPROXEN [Suspect]
     Indication: PAIN
  2. DULOXETINE HYDROCHLORIDE [Suspect]
     Indication: PAIN
     Dosage: 60 MG
  3. ZOLPIDEM [Suspect]
     Indication: INSOMNIA
  4. HALOPERIDOL DECANOATE [Suspect]
     Indication: SCHIZOAFFECTIVE DISORDER
     Route: 030
  5. ZOLPIDEM [Suspect]
     Indication: MUSCULOSKELETAL PAIN

REACTIONS (3)
  - DELIRIUM [None]
  - LOSS OF CONSCIOUSNESS [None]
  - DRUG ABUSE [None]
